FAERS Safety Report 7204261-5 (Version None)
Quarter: 2010Q4

REPORT INFORMATION
  Report Type: 
  Country: None (occurrence: None)
  Receive Date: 20101230
  Receipt Date: 20101228
  Transmission Date: 20110411
  Serious: Yes (Death, Other)
  Sender: FDA-Public Use
  Company Number: US-PFIZER INC-HQWYE705330NOV04

PATIENT
  Sex: Female

DRUGS (3)
  1. PREMPRO [Suspect]
     Indication: HORMONE REPLACEMENT THERAPY
     Dosage: UNSPECIFIED
     Route: 048
     Dates: start: 19970101, end: 20020901
  2. PREMPRO [Suspect]
     Indication: OSTEOPOROSIS
  3. PREMPRO [Suspect]
     Indication: PROPHYLAXIS

REACTIONS (1)
  - BREAST CANCER [None]
